FAERS Safety Report 10012150 (Version 3)
Quarter: 2014Q2

REPORT INFORMATION
  Report Type: Report from Study
  Country: US (occurrence: US)
  Receive Date: 20140314
  Receipt Date: 20140408
  Transmission Date: 20141212
  Serious: Yes (Other)
  Sender: FDA-Public Use
  Company Number: US-VIIV HEALTHCARE LIMITED-A1064768A

PATIENT
  Age: 39 Year
  Sex: Female

DRUGS (3)
  1. ABACAVIR [Suspect]
     Indication: HIV INFECTION
     Dosage: 600MG PER DAY
     Route: 048
  2. LAMIVUDINE-HIV [Suspect]
     Indication: HIV INFECTION
     Dosage: 100MG PER DAY
     Route: 065
  3. KALETRA [Suspect]
     Indication: HIV INFECTION
     Dosage: 4U PER DAY
     Route: 048

REACTIONS (10)
  - Dialysis [Unknown]
  - Blood pressure inadequately controlled [Unknown]
  - Blood glucose increased [Unknown]
  - Chronic obstructive pulmonary disease [Unknown]
  - Superior vena cava syndrome [Unknown]
  - Treatment noncompliance [Unknown]
  - Premature delivery [Unknown]
  - Live birth [Unknown]
  - Exposure during pregnancy [Unknown]
  - Diabetes mellitus inadequate control [Unknown]
